FAERS Safety Report 18071263 (Version 1)
Quarter: 2020Q3

REPORT INFORMATION
  Report Type: Spontaneous
  Country: FR (occurrence: FR)
  Receive Date: 20200727
  Receipt Date: 20200727
  Transmission Date: 20201103
  Serious: Yes (Death, Other)
  Sender: FDA-Public Use
  Company Number: FR-SA-2020SA190784

PATIENT

DRUGS (2)
  1. ZARZIO [Concomitant]
     Active Substance: FILGRASTIM
     Dosage: UNK
  2. MOZOBIL [Suspect]
     Active Substance: PLERIXAFOR
     Indication: HAEMATOPOIETIC STEM CELL MOBILISATION
     Dosage: UNK

REACTIONS (3)
  - Platelet count increased [Recovered/Resolved]
  - Aplasia [Fatal]
  - Thrombocytosis [Unknown]
